FAERS Safety Report 6582754-1 (Version None)
Quarter: 2010Q1

REPORT INFORMATION
  Report Type: 
  Country: None (occurrence: None)
  Receive Date: 20100216
  Receipt Date: 20100203
  Transmission Date: 20100710
  Serious: Yes (Hospitalization)
  Sender: FDA-Public Use
  Company Number: JP-PFIZER INC-2010003003

PATIENT
  Age: 75 Year
  Sex: Male
  Weight: 50.7 kg

DRUGS (9)
  1. SUNITINIB MALATE [Suspect]
     Indication: RENAL CELL CARCINOMA
     Dosage: 50 MG, 1X/DAY
     Route: 048
     Dates: start: 20091124, end: 20091206
  2. MAGNESIUM OXIDE [Concomitant]
     Dosage: UNK
     Route: 048
  3. PURSENNID [Concomitant]
     Dosage: UNK
     Route: 048
  4. ALLOPURINOL [Concomitant]
     Dosage: UNK
     Route: 048
  5. SELBEX [Concomitant]
     Dosage: UNK
     Route: 048
  6. DECADRON [Concomitant]
     Dosage: UNK
     Route: 048
  7. PERIACTIN [Concomitant]
     Dosage: UNK
     Route: 048
  8. LAC B [Concomitant]
     Dosage: UNK
     Route: 048
  9. FERROMIA [Concomitant]
     Dosage: UNK
     Route: 048

REACTIONS (3)
  - FEMORAL NECK FRACTURE [None]
  - HYPOTHYROIDISM [None]
  - PLATELET COUNT DECREASED [None]
